FAERS Safety Report 14536125 (Version 2)
Quarter: 2018Q2

REPORT INFORMATION
  Report Type: Spontaneous
  Country: US (occurrence: US)
  Receive Date: 20180215
  Receipt Date: 20180508
  Transmission Date: 20180711
  Serious: No
  Sender: FDA-Public Use
  Company Number: US-RADIUS HEALTH INC.-2018US000083

PATIENT
  Age: 78 Year
  Sex: Female

DRUGS (2)
  1. TYMLOS [Suspect]
     Active Substance: ABALOPARATIDE
     Indication: OSTEOPOROSIS POSTMENOPAUSAL
     Dosage: 80 MCG; DAILY
     Route: 058
     Dates: start: 20180118
  2. TYMLOS [Suspect]
     Active Substance: ABALOPARATIDE
     Indication: SPINAL FRACTURE

REACTIONS (3)
  - Headache [Recovering/Resolving]
  - Drug dose omission [Unknown]
  - Chest discomfort [Recovering/Resolving]

NARRATIVE: CASE EVENT DATE: 20180118
